FAERS Safety Report 11572501 (Version 2)
Quarter: 2016Q3

REPORT INFORMATION
  Report Type: Spontaneous
  Country: US (occurrence: US)
  Receive Date: 20150929
  Receipt Date: 20160801
  Transmission Date: 20161109
  Serious: No
  Sender: FDA-Public Use
  Company Number: US-BAYER-2015-426891

PATIENT
  Sex: Female
  Weight: 86.62 kg

DRUGS (13)
  1. ASACOL [Concomitant]
     Active Substance: MESALAMINE
  2. AVELOX [Suspect]
     Active Substance: MOXIFLOXACIN HYDROCHLORIDE
     Indication: BRONCHITIS
     Dosage: 400 MG, UNK
     Route: 048
     Dates: start: 20090319
  3. LEVOXYL [Concomitant]
     Active Substance: LEVOTHYROXINE SODIUM
  4. ATIVAN [Concomitant]
     Active Substance: LORAZEPAM
  5. OMEPRAZOLE. [Concomitant]
     Active Substance: OMEPRAZOLE
  6. AVELOX [Suspect]
     Active Substance: MOXIFLOXACIN HYDROCHLORIDE
     Indication: SINUSITIS
     Dosage: 400 MG, UNK
     Dates: start: 20160128
  7. AVELOX [Suspect]
     Active Substance: MOXIFLOXACIN HYDROCHLORIDE
     Indication: SINUSITIS
     Dosage: UNK
     Route: 048
     Dates: start: 20081201
  8. TOPROL XL [Concomitant]
     Active Substance: METOPROLOL SUCCINATE
  9. LEVAQUIN [Suspect]
     Active Substance: LEVOFLOXACIN
     Indication: RESPIRATORY TRACT INFECTION
     Dosage: 750 MG, UNK
     Route: 050
     Dates: start: 20100226
  10. DIGITEK [Concomitant]
     Active Substance: DIGOXIN
  11. EFFEXOR [Concomitant]
     Active Substance: VENLAFAXINE HYDROCHLORIDE
  12. LORTAB [Concomitant]
     Active Substance: ACETAMINOPHEN\HYDROCODONE BITARTRATE
  13. AVELOX [Suspect]
     Active Substance: MOXIFLOXACIN HYDROCHLORIDE
     Indication: SINUSITIS
     Dosage: UNK
     Route: 048
     Dates: start: 20081201

REACTIONS (10)
  - Emotional disorder [Not Recovered/Not Resolved]
  - Muscular weakness [None]
  - Paraesthesia [None]
  - Injury [Not Recovered/Not Resolved]
  - Pain [None]
  - Hypoaesthesia [None]
  - Pain in extremity [None]
  - Neuropathy peripheral [None]
  - Arthralgia [None]
  - Anxiety [None]
